FAERS Safety Report 9332761 (Version 1)
Quarter: 2013Q2

REPORT INFORMATION
  Report Type: Spontaneous
  Country: FR (occurrence: None)
  Receive Date: 20130603
  Receipt Date: 20130603
  Transmission Date: 20140414
  Serious: Yes (Hospitalization)
  Sender: FDA-Public Use
  Company Number: FR-ALKEM-000087

PATIENT
  Age: 52 Year
  Sex: 0
  Weight: 105 kg

DRUGS (2)
  1. MYCOPHENOLATE MOFETIL (MYCOPHENOLATE MOFETIL) [Suspect]
     Indication: PEMPHIGOID
  2. CLOBETASOL PROPIONATE [Suspect]
     Indication: PEMPHIGOID

REACTIONS (4)
  - Necrotising fasciitis [None]
  - Drug effect decreased [None]
  - Streptococcus test positive [None]
  - Off label use [None]
